FAERS Safety Report 23575902 (Version 2)
Quarter: 2024Q1

REPORT INFORMATION
  Report Type: Spontaneous
  Country: BE (occurrence: BE)
  Receive Date: 20240228
  Receipt Date: 20240327
  Transmission Date: 20240410
  Serious: Yes (Life-Threatening, Hospitalization)
  Sender: FDA-Public Use
  Company Number: BE-JNJFOC-20240269184

PATIENT
  Sex: Female

DRUGS (2)
  1. SPRAVATO [Suspect]
     Active Substance: ESKETAMINE
     Indication: Depression
     Dosage: FOR 4 WEEKS
  2. SPRAVATO [Suspect]
     Active Substance: ESKETAMINE

REACTIONS (4)
  - Suicide attempt [Unknown]
  - Suicidal ideation [Unknown]
  - Aggression [Unknown]
  - Drug ineffective [Unknown]
